FAERS Safety Report 25592814 (Version 3)
Quarter: 2025Q3

REPORT INFORMATION
  Report Type: Spontaneous
  Country: US (occurrence: US)
  Receive Date: 20250722
  Receipt Date: 20250903
  Transmission Date: 20251020
  Serious: No
  Sender: SANOFI AVENTIS
  Company Number: US-SA-2025SA208071

PATIENT
  Age: 61 Year
  Sex: Female
  Weight: 102.73 kg

DRUGS (1)
  1. DUPIXENT [Suspect]
     Active Substance: DUPILUMAB
     Indication: Dermatitis atopic
     Dosage: 300 MG, QOW
     Route: 058

REACTIONS (4)
  - Pain of skin [Unknown]
  - Pain [Unknown]
  - Rebound effect [Unknown]
  - Inappropriate schedule of product administration [Unknown]
